FAERS Safety Report 26081931 (Version 1)
Quarter: 2025Q4

REPORT INFORMATION
  Report Type: Spontaneous
  Country: US (occurrence: US)
  Receive Date: 20251124
  Receipt Date: 20251124
  Transmission Date: 20260117
  Serious: No
  Sender: Emerge Bioscience
  Company Number: US-EMERGE-2025MPSPO00378

PATIENT
  Age: 83 Year
  Sex: Female
  Weight: 64.6 kg

DRUGS (1)
  1. HEPARIN SODIUM [Suspect]
     Active Substance: HEPARIN SODIUM
     Indication: Product used for unknown indication
     Dosage: 1,000 USP UNITS PER ML
     Route: 065
     Dates: start: 20251003

REACTIONS (1)
  - Drug effect less than expected [Unknown]
